FAERS Safety Report 18749391 (Version 2)
Quarter: 2021Q2

REPORT INFORMATION
  Report Type: Spontaneous
  Country: DE (occurrence: DE)
  Receive Date: 20210116
  Receipt Date: 20210522
  Transmission Date: 20210717
  Serious: Yes (Congenital Anomaly)
  Sender: FDA-Public Use
  Company Number: NVSC2021DE005582

PATIENT
  Sex: Male
  Weight: 2.31 kg

DRUGS (5)
  1. ARIPIPRAZOL [Suspect]
     Active Substance: ARIPIPRAZOLE
     Indication: FOETAL EXPOSURE DURING PREGNANCY
     Dosage: UNK (MATERNAL DOSE: 10 MG, QD)
     Route: 064
     Dates: start: 20191107, end: 20200704
  2. INFLUSPLIT TETRA [Concomitant]
     Active Substance: INFLUENZA VIRUS VACCINE
     Indication: FOETAL EXPOSURE DURING PREGNANCY
     Dosage: UNK
     Route: 064
     Dates: start: 20200228, end: 20200228
  3. RISPERIDONE. [Suspect]
     Active Substance: RISPERIDONE
     Indication: FOETAL EXPOSURE DURING PREGNANCY
     Dosage: UNK (MATERNAL DOSE (0.5 [MG/D ]))
     Route: 064
     Dates: start: 20191107, end: 20200402
  4. L?THYROXINE [Concomitant]
     Active Substance: LEVOTHYROXINE
     Indication: FOETAL EXPOSURE DURING PREGNANCY
     Dosage: UNK MATERNAL DOSE: 50 [?G/D (BIS 25) ]
     Route: 064
     Dates: start: 20191107, end: 20200704
  5. GELOREVOICE [Concomitant]
     Indication: FOETAL EXPOSURE DURING PREGNANCY
     Dosage: UNK
     Route: 064
     Dates: start: 20200104, end: 20200114

REACTIONS (6)
  - Atrial septal defect [Unknown]
  - Double outlet right ventricle [Unknown]
  - Pulmonary artery stenosis congenital [Unknown]
  - Congenital mitral valve incompetence [Unknown]
  - Ventricular septal defect [Unknown]
  - Foetal exposure during pregnancy [Unknown]
